FAERS Safety Report 4918654-X (Version None)
Quarter: 2006Q1

REPORT INFORMATION
  Report Type: 
  Country: None (occurrence: None)
  Receive Date: 20060222
  Receipt Date: 20060209
  Transmission Date: 20060701
  Serious: Yes (Hospitalization)
  Sender: FDA-Public Use
  Company Number: FR-AVENTIS-200610537FR

PATIENT
  Age: 54 Year
  Sex: Female

DRUGS (6)
  1. TAXOTERE [Suspect]
     Indication: MALIGNANT NIPPLE NEOPLASM FEMALE
     Route: 042
     Dates: start: 20050313, end: 20050313
  2. TAXOL [Suspect]
     Indication: MALIGNANT NIPPLE NEOPLASM FEMALE
     Route: 042
     Dates: start: 20050501, end: 20050613
  3. ENDOXAN [Concomitant]
     Indication: MALIGNANT NIPPLE NEOPLASM FEMALE
     Route: 042
  4. FARMORUBICINE [Concomitant]
     Indication: MALIGNANT NIPPLE NEOPLASM FEMALE
     Route: 042
  5. FLUOROURACIL [Concomitant]
     Indication: MALIGNANT NIPPLE NEOPLASM FEMALE
     Route: 042
  6. METHOTREXATE [Concomitant]
     Indication: MALIGNANT NIPPLE NEOPLASM FEMALE
     Route: 042

REACTIONS (2)
  - DERMATOMYOSITIS [None]
  - DRUG TOXICITY [None]
